FAERS Safety Report 4537499-6 (Version None)
Quarter: 2004Q4

REPORT INFORMATION
  Report Type: 
  Country: None (occurrence: None)
  Receive Date: 20041216
  Receipt Date: 20040412
  Transmission Date: 20050328
  Serious: Yes (Life-Threatening, Hospitalization, Other)
  Sender: FDA-Public Use
  Company Number: HQWYE440913APR04

PATIENT
  Age: 42 Year
  Sex: Female
  Weight: 72.64 kg

DRUGS (3)
  1. EFFEXOR XR [Suspect]
     Indication: DEPRESSION
     Dosage: OVERDOSE, ORAL
     Route: 048
     Dates: start: 20040301, end: 20040301
  2. EFFEXOR XR [Suspect]
     Indication: SCHIZOAFFECTIVE DISORDER
     Dosage: OVERDOSE, ORAL
     Route: 048
     Dates: start: 20040301, end: 20040301
  3. ZYPREXA [Concomitant]

REACTIONS (2)
  - INTENTIONAL OVERDOSE [None]
  - SUICIDE ATTEMPT [None]
